FAERS Safety Report 16759416 (Version 6)
Quarter: 2020Q1

REPORT INFORMATION
  Report Type: Spontaneous
  Country: MM (occurrence: MM)
  Receive Date: 20190830
  Receipt Date: 20200129
  Transmission Date: 20200409
  Serious: Yes (Hospitalization, Disabling)
  Sender: FDA-Public Use
  Company Number: MM-JNJFOC-20190824933

PATIENT
  Age: 32 Year
  Sex: Male
  Weight: 43 kg

DRUGS (14)
  1. DELAMANID [Suspect]
     Active Substance: DELAMANID
     Indication: TUBERCULOSIS
     Route: 048
     Dates: start: 20190305, end: 2019
  2. BEDAQUILINE [Suspect]
     Active Substance: BEDAQUILINE
     Indication: TUBERCULOSIS
     Route: 048
     Dates: start: 20190305, end: 201903
  3. LEVOFLOXACIN. [Suspect]
     Active Substance: LEVOFLOXACIN
     Indication: TUBERCULOSIS
     Route: 048
     Dates: start: 20190305, end: 2019
  4. PYRAZINAMIDE. [Suspect]
     Active Substance: PYRAZINAMIDE
     Indication: TUBERCULOSIS
     Route: 048
     Dates: start: 20190404
  5. LEVOFLOXACIN. [Suspect]
     Active Substance: LEVOFLOXACIN
     Route: 048
     Dates: start: 20190919
  6. DELAMANID [Suspect]
     Active Substance: DELAMANID
     Route: 048
     Dates: start: 2019
  7. LINEZOLID. [Suspect]
     Active Substance: LINEZOLID
     Indication: TUBERCULOSIS
     Route: 048
     Dates: start: 20190305, end: 20190816
  8. BEDAQUILINE [Suspect]
     Active Substance: BEDAQUILINE
     Route: 048
  9. AMLODIPINE [Concomitant]
     Active Substance: AMLODIPINE BESYLATE
     Indication: HYPERTENSION
     Dosage: AT NIGHT
     Route: 065
  10. LEVOFLOXACIN. [Suspect]
     Active Substance: LEVOFLOXACIN
     Route: 048
     Dates: start: 20190829, end: 2019
  11. CLOFAZIMINE [Suspect]
     Active Substance: CLOFAZIMINE
     Indication: TUBERCULOSIS
     Route: 048
     Dates: start: 20190305
  12. ENALAPRIL [Concomitant]
     Active Substance: ENALAPRIL
     Indication: HYPERTENSION
     Dates: start: 20190521
  13. PYRIDOXINE [Concomitant]
     Active Substance: PYRIDOXINE
     Indication: TUBERCULOSIS
     Dates: start: 20190304
  14. ALZOLAM [Concomitant]
     Indication: ANXIETY
     Route: 065
     Dates: start: 20190418

REACTIONS (8)
  - Decreased appetite [Unknown]
  - Hypokalaemia [Recovered/Resolved]
  - Neuropathy peripheral [Not Recovered/Not Resolved]
  - Hyperuricaemia [Unknown]
  - Anaemia [Recovering/Resolving]
  - Haemoptysis [Unknown]
  - Vomiting [Recovering/Resolving]
  - Weight decreased [Unknown]

NARRATIVE: CASE EVENT DATE: 2019
